FAERS Safety Report 4380514-3 (Version None)
Quarter: 2004Q2

REPORT INFORMATION
  Report Type: 
  Country: None (occurrence: None)
  Receive Date: 20040614
  Receipt Date: 20031114
  Transmission Date: 20050107
  Serious: Yes (Hospitalization)
  Sender: FDA-Public Use
  Company Number: WAES 0311USA01783

PATIENT
  Sex: Female

DRUGS (3)
  1. COZAAR [Suspect]
     Indication: HYPERTENSION
     Dosage: 50 MG/BID/PO
     Route: 048
  2. HYDRODIURIL [Concomitant]
  3. TEGRETOL [Concomitant]

REACTIONS (1)
  - HYPONATRAEMIA [None]
